FAERS Safety Report 24277488 (Version 1)
Quarter: 2024Q3

REPORT INFORMATION
  Report Type: Spontaneous
  Country: US (occurrence: US)
  Receive Date: 20240903
  Receipt Date: 20240903
  Transmission Date: 20241016
  Serious: No
  Sender: BAYER
  Company Number: US-BAYER-2024A124520

PATIENT
  Age: 47 Year
  Sex: Female

DRUGS (2)
  1. MIRENA [Suspect]
     Active Substance: LEVONORGESTREL
     Indication: Intrauterine contraception
     Dosage: 20?G/DAY
     Route: 015
     Dates: start: 202208
  2. BAFIERTAM [Concomitant]
     Active Substance: MONOMETHYL FUMARATE

REACTIONS (6)
  - Skin lesion [None]
  - Muscle spasticity [None]
  - Muscle spasms [None]
  - Paraesthesia [None]
  - Hypoaesthesia [None]
  - Frostbite [None]

NARRATIVE: CASE EVENT DATE: 20240720
